FAERS Safety Report 25233300 (Version 2)
Quarter: 2025Q2

REPORT INFORMATION
  Report Type: Report from Study
  Country: GB (occurrence: GB)
  Receive Date: 20250424
  Receipt Date: 20250514
  Transmission Date: 20250716
  Serious: Yes (Life-Threatening)
  Sender: ROCHE
  Company Number: GB-ROCHE-10000262260

PATIENT
  Age: 65 Year
  Sex: Female
  Weight: 60.6 kg

DRUGS (1)
  1. KADCYLA [Suspect]
     Active Substance: ADO-TRASTUZUMAB EMTANSINE
     Indication: Breast cancer metastatic
     Route: 042
     Dates: start: 20130926, end: 20241114

REACTIONS (1)
  - Hepatic cirrhosis [Recovered/Resolved with Sequelae]

NARRATIVE: CASE EVENT DATE: 20240401
